FAERS Safety Report 22206302 (Version 1)
Quarter: 2023Q2

REPORT INFORMATION
  Report Type: Report from Study
  Country: US (occurrence: US)
  Receive Date: 20230413
  Receipt Date: 20230413
  Transmission Date: 20230721
  Serious: Yes (Other)
  Sender: FDA-Public Use
  Company Number: US-MYLANLABS-2023M1037592

PATIENT
  Sex: Female

DRUGS (10)
  1. CROMOLYN SODIUM [Suspect]
     Active Substance: CROMOLYN SODIUM
     Indication: Mast cell activation syndrome
     Dosage: UNK
     Route: 048
  2. MONTELUKAST [Suspect]
     Active Substance: MONTELUKAST SODIUM
     Indication: Mast cell activation syndrome
     Dosage: UNK
     Route: 065
  3. ASCORBIC ACID [Suspect]
     Active Substance: ASCORBIC ACID
     Indication: Mast cell activation syndrome
     Dosage: UNK
     Route: 065
  4. IMATINIB [Suspect]
     Active Substance: IMATINIB
     Indication: Mast cell activation syndrome
     Dosage: UNK
     Route: 065
  5. KETOTIFEN [Suspect]
     Active Substance: KETOTIFEN
     Indication: Mast cell activation syndrome
     Dosage: UNK
     Route: 048
  6. NALTREXONE [Suspect]
     Active Substance: NALTREXONE
     Indication: Mast cell activation syndrome
     Dosage: UNK
     Route: 065
  7. QUERCETIN [Suspect]
     Active Substance: QUERCETIN
     Indication: Mast cell activation syndrome
     Dosage: UNK
     Route: 065
  8. HYDROXYUREA [Suspect]
     Active Substance: HYDROXYUREA
     Indication: Mast cell activation syndrome
     Dosage: 600 MILLIGRAM, QD
     Route: 048
  9. PENTOSAN POLYSULFATE [Suspect]
     Active Substance: PENTOSAN POLYSULFATE
     Indication: Mast cell activation syndrome
     Dosage: UNK
     Route: 065
  10. ZILEUTON [Suspect]
     Active Substance: ZILEUTON
     Indication: Mast cell activation syndrome
     Dosage: UNK
     Route: 065

REACTIONS (1)
  - Drug ineffective [Unknown]
